FAERS Safety Report 8849328 (Version 1)
Quarter: 2012Q4

REPORT INFORMATION
  Report Type: Spontaneous
  Country: US (occurrence: None)
  Receive Date: 20121017
  Receipt Date: 20121017
  Transmission Date: 20130627
  Serious: No
  Sender: FDA-Public Use
  Company Number: None

PATIENT
  Age: 68 Year
  Sex: Female

DRUGS (6)
  1. DOCETAXEL [Suspect]
     Indication: BREAST CARCINOMA STAGE II
     Dosage: 75 mg/m2, once, IV
     Route: 042
     Dates: start: 20120906, end: 20120906
  2. LEVAQUIN [Concomitant]
  3. NEULASTA [Concomitant]
  4. CYTOXAN [Concomitant]
  5. PEPCID [Concomitant]
  6. ALOXI [Concomitant]

REACTIONS (3)
  - Muscle spasms [None]
  - Constipation [None]
  - Erythema [None]
